FAERS Safety Report 8111767-3 (Version None)
Quarter: 2011Q4

REPORT INFORMATION
  Report Type: 
  Country: None (occurrence: None)
  Receive Date: 20111223
  Receipt Date: 20101129
  Transmission Date: 20120403
  Serious: Yes (Other)
  Sender: FDA-Public Use
  Company Number: PHHY2010US81150

PATIENT

DRUGS (6)
  1. LUVOX [Concomitant]
  2. LORAZEPAM [Concomitant]
  3. CLOZARIL [Suspect]
     Indication: DEPRESSION
     Dosage: 12.5 6.25 MG
     Dates: end: 20101121
  4. CLOZARIL [Suspect]
     Indication: COMPLETED SUICIDE
     Dosage: 12.5 6.25 MG
     Dates: end: 20101121
  5. CLOZARIL [Suspect]
     Indication: PSYCHOTIC DISORDER
     Dosage: 12.5 6.25 MG
     Dates: end: 20101121
  6. ABILIFY [Concomitant]

REACTIONS (3)
  - DIZZINESS [None]
  - ORTHOSTATIC HYPOTENSION [None]
  - HEART RATE DECREASED [None]
